FAERS Safety Report 5213018-6 (Version None)
Quarter: 2007Q1

REPORT INFORMATION
  Report Type: 
  Country: None (occurrence: None)
  Receive Date: 20070117
  Receipt Date: 20070117
  Transmission Date: 20070707
  Serious: Yes (Hospitalization)
  Sender: FDA-Public Use
  Company Number: None

PATIENT
  Sex: Male

DRUGS (10)
  1. ZYPREXA ZYDIS [Suspect]
     Indication: PSYCHOTIC DISORDER
     Dosage: 5 MG AM PO
     Route: 048
     Dates: start: 20060929, end: 20061003
  2. ZYPREXA ZYDIS [Suspect]
     Indication: PSYCHOTIC DISORDER
     Dosage: 10 MG HS PO
     Route: 048
     Dates: start: 20060929, end: 20061002
  3. ARIPIPRAZOLE [Concomitant]
  4. BUPROPION HCL [Concomitant]
  5. RIVASTIGMINE [Concomitant]
  6. MIRTAZAPINE [Concomitant]
  7. ALPRAZOLAM [Concomitant]
  8. SINEMET [Concomitant]
  9. CARVEDILOL [Concomitant]
  10. OMEPRAZOLE [Concomitant]

REACTIONS (1)
  - NEUROLEPTIC MALIGNANT SYNDROME [None]
